FAERS Safety Report 20162587 (Version 3)
Quarter: 2022Q1

REPORT INFORMATION
  Report Type: Other
  Country: US (occurrence: US)
  Receive Date: 20211208
  Receipt Date: 20220304
  Transmission Date: 20220423
  Serious: Yes (Death, Congenital Anomaly, Other)
  Sender: FDA-Public Use
  Company Number: US-Covis Pharma GmbH-2021COV24893

PATIENT
  Sex: Female

DRUGS (1)
  1. MAKENA [Suspect]
     Active Substance: HYDROXYPROGESTERONE CAPROATE
     Indication: Foetal exposure during pregnancy
     Route: 064
     Dates: start: 20211018, end: 20211123

REACTIONS (8)
  - Talipes [Unknown]
  - Abdominal wall disorder [Unknown]
  - Congenital cardiovascular anomaly [Unknown]
  - Cystic lymphangioma [Unknown]
  - Cytogenetic abnormality [Unknown]
  - Multiple congenital abnormalities [Unknown]
  - Foetal growth restriction [Unknown]
  - Stillbirth [Fatal]

NARRATIVE: CASE EVENT DATE: 20211126
